FAERS Safety Report 7092427-7 (Version None)
Quarter: 2010Q4

REPORT INFORMATION
  Report Type: 
  Country: None (occurrence: None)
  Receive Date: 20101110
  Receipt Date: 20101101
  Transmission Date: 20110411
  Serious: Yes (Other)
  Sender: FDA-Public Use
  Company Number: US-BAYER-201039539NA

PATIENT
  Age: 34 Year
  Sex: Female

DRUGS (2)
  1. AVELOX [Suspect]
     Indication: ANTIBIOTIC PROPHYLAXIS
     Route: 048
     Dates: start: 20101023, end: 20101023
  2. ADVAIR DISKUS 100/50 [Concomitant]

REACTIONS (5)
  - DIZZINESS [None]
  - DYSARTHRIA [None]
  - HYPOAESTHESIA [None]
  - TREMOR [None]
  - VISION BLURRED [None]
